FAERS Safety Report 17467189 (Version 2)
Quarter: 2020Q3

REPORT INFORMATION
  Report Type: Report from Study
  Country: CA (occurrence: CA)
  Receive Date: 20200227
  Receipt Date: 20200707
  Transmission Date: 20201102
  Serious: Yes (Other)
  Sender: FDA-Public Use
  Company Number: CA-AMGEN-CANSL2020031789

PATIENT
  Age: 81 Year
  Sex: Female

DRUGS (1)
  1. PROLIA [Suspect]
     Active Substance: DENOSUMAB
     Indication: PRODUCT USED FOR UNKNOWN INDICATION
     Dosage: 60 MILLIGRAM PER MILLILITRE, Q6MO
     Route: 065
     Dates: start: 20190123

REACTIONS (1)
  - Breast cancer [Unknown]

NARRATIVE: CASE EVENT DATE: 2019
